FAERS Safety Report 18402383 (Version 1)
Quarter: 2020Q4

REPORT INFORMATION
  Report Type: Spontaneous
  Country: US (occurrence: US)
  Receive Date: 20201019
  Receipt Date: 20201019
  Transmission Date: 20210114
  Serious: Yes (Hospitalization, Other)
  Sender: FDA-Public Use
  Company Number: US-AMGEN-USASP2020166373

PATIENT
  Age: 8 Year
  Sex: Male

DRUGS (2)
  1. CHOLECALCIFEROL [Concomitant]
     Active Substance: CHOLECALCIFEROL
  2. DENOSUMAB [Suspect]
     Active Substance: DENOSUMAB
     Indication: NOONAN SYNDROME
     Dosage: 35 MILLIGRAM, Q4WK
     Route: 058
     Dates: start: 201705, end: 201801

REACTIONS (4)
  - Pain in extremity [Unknown]
  - Gait disturbance [Unknown]
  - Hypercalcaemia [Recovered/Resolved]
  - Off label use [Unknown]

NARRATIVE: CASE EVENT DATE: 201705
